FAERS Safety Report 24887544 (Version 1)
Quarter: 2025Q1

REPORT INFORMATION
  Report Type: Spontaneous
  Country: US (occurrence: US)
  Receive Date: 20250127
  Receipt Date: 20250127
  Transmission Date: 20250409
  Serious: Yes (Other)
  Sender: DR REDDYS
  Company Number: US-DRL-USA-USA/2025/01/000846

PATIENT
  Age: 29 Year
  Sex: Female

DRUGS (5)
  1. THIOTEPA [Suspect]
     Active Substance: THIOTEPA
     Indication: Pinealoblastoma
  2. CYCLOPHOSPHAMIDE [Suspect]
     Active Substance: CYCLOPHOSPHAMIDE
     Indication: Pinealoblastoma
  3. ETOPOSIDE [Suspect]
     Active Substance: ETOPOSIDE
     Indication: Pinealoblastoma
  4. VINCRISTINE [Suspect]
     Active Substance: VINCRISTINE
     Indication: Pinealoblastoma
  5. CARBOPLATIN [Suspect]
     Active Substance: CARBOPLATIN
     Indication: Pinealoblastoma

REACTIONS (2)
  - Diffuse alopecia [Unknown]
  - Product use in unapproved indication [Unknown]
